FAERS Safety Report 4523823-7 (Version None)
Quarter: 2004Q4

REPORT INFORMATION
  Report Type: 
  Country: None (occurrence: None)
  Receive Date: 20041101
  Receipt Date: 20040326
  Transmission Date: 20050328
  Serious: Yes (Hospitalization)
  Sender: FDA-Public Use
  Company Number: US070791

PATIENT
  Age: 77 Year
  Sex: Female

DRUGS (1)
  1. PROCRIT [Suspect]
     Indication: PRE-EXISTING DISEASE
     Dosage: 60000 U, 1 IN 1 WEEKS, SC
     Route: 059
     Dates: start: 20010101, end: 20040324

REACTIONS (1)
  - THERAPEUTIC RESPONSE DECREASED [None]
